FAERS Safety Report 11825569 (Version 5)
Quarter: 2018Q4

REPORT INFORMATION
  Report Type: Spontaneous
  Country: US (occurrence: US)
  Receive Date: 20151211
  Receipt Date: 20181120
  Transmission Date: 20190204
  Serious: No
  Sender: FDA-Public Use
  Company Number: US-JNJFOC-20150610552

PATIENT
  Age: 89 Year
  Sex: Female

DRUGS (10)
  1. FENTANYL. [Concomitant]
     Active Substance: FENTANYL
  2. IMBRUVICA [Suspect]
     Active Substance: IBRUTINIB
     Indication: CHRONIC LYMPHOCYTIC LEUKAEMIA
     Route: 048
     Dates: start: 20160512
  3. ATENOLOL. [Concomitant]
     Active Substance: ATENOLOL
  4. IMBRUVICA [Suspect]
     Active Substance: IBRUTINIB
     Indication: CHRONIC LYMPHOCYTIC LEUKAEMIA
     Route: 048
     Dates: start: 20140524
  5. MECLIZINE [Concomitant]
     Active Substance: MECLIZINE HYDROCHLORIDE
  6. ULORIC [Concomitant]
     Active Substance: FEBUXOSTAT
  7. IMBRUVICA [Suspect]
     Active Substance: IBRUTINIB
     Indication: CHRONIC LYMPHOCYTIC LEUKAEMIA
     Route: 048
     Dates: start: 20170223
  8. IMBRUVICA [Suspect]
     Active Substance: IBRUTINIB
     Indication: CHRONIC LYMPHOCYTIC LEUKAEMIA
     Route: 048
     Dates: start: 20140331
  9. ANTIVERT [Concomitant]
     Active Substance: MECLIZINE HYDROCHLORIDE
  10. POTASSIUM [Concomitant]
     Active Substance: POTASSIUM

REACTIONS (7)
  - Incorrect dose administered [Unknown]
  - Dry skin [Unknown]
  - Diarrhoea [Unknown]
  - Off label use [Unknown]
  - Pruritus [Unknown]
  - Pruritus generalised [Not Recovered/Not Resolved]
  - Mass [Unknown]

NARRATIVE: CASE EVENT DATE: 20140331
